FAERS Safety Report 17742918 (Version 1)
Quarter: 2020Q2

REPORT INFORMATION
  Report Type: Spontaneous
  Country: CA (occurrence: CA)
  Receive Date: 20200505
  Receipt Date: 20200505
  Transmission Date: 20200714
  Serious: Yes (Death)
  Sender: FDA-Public Use
  Company Number: CA-ROCHE-2592882

PATIENT
  Age: 76 Year
  Sex: Male
  Weight: 50 kg

DRUGS (10)
  1. ATORVASTATIN [Concomitant]
     Active Substance: ATORVASTATIN
  2. TECENTRIQ [Suspect]
     Active Substance: ATEZOLIZUMAB
     Indication: SMALL CELL LUNG CANCER
     Route: 042
  3. CALCIUM [Concomitant]
     Active Substance: CALCIUM
  4. ACETAMINOPHEN. [Concomitant]
     Active Substance: ACETAMINOPHEN
  5. CARBOPLATIN. [Suspect]
     Active Substance: CARBOPLATIN
     Indication: SMALL CELL LUNG CANCER
     Route: 042
  6. LOSARTAN AND HYDROCHLOROTHIAZIDE [Concomitant]
     Active Substance: HYDROCHLOROTHIAZIDE\LOSARTAN POTASSIUM
  7. ETOPOSIDE. [Suspect]
     Active Substance: ETOPOSIDE
     Indication: SMALL CELL LUNG CANCER
     Route: 042
  8. NIFEDIPINE. [Concomitant]
     Active Substance: NIFEDIPINE
  9. ASPIRIN [ACETYLSALICYLIC ACID] [Concomitant]
     Active Substance: ASPIRIN
  10. VITAMIN D3 [Concomitant]
     Active Substance: CHOLECALCIFEROL
     Route: 048

REACTIONS (10)
  - Diarrhoea [Fatal]
  - Pyrexia [Fatal]
  - Neutropenia [Fatal]
  - Vomiting [Fatal]
  - Acute myocardial infarction [Fatal]
  - Sepsis [Fatal]
  - Hypokalaemia [Fatal]
  - Atrial fibrillation [Fatal]
  - Metabolic acidosis [Fatal]
  - Abdominal pain [Fatal]
